FAERS Safety Report 9641336 (Version 1)
Quarter: 2013Q4

REPORT INFORMATION
  Report Type: Spontaneous
  Country: US (occurrence: None)
  Receive Date: 20131022
  Receipt Date: 20131022
  Transmission Date: 20140711
  Serious: No
  Sender: FDA-Public Use
  Company Number: None

PATIENT
  Age: 72 Year
  Sex: Female
  Weight: 65.77 kg

DRUGS (8)
  1. EYLEA [Suspect]
     Indication: AGE-RELATED MACULAR DEGENERATION
     Dosage: 2MG/0.05ML PRN/AS NEEDED, OPHTHALMIC
     Dates: start: 20130930, end: 20130930
  2. NEXIUM [Concomitant]
  3. LIVALO [Concomitant]
  4. FISH OIL [Concomitant]
  5. CALCIUM [Concomitant]
  6. MULTI-VITAMIN [Concomitant]
  7. HERB LAX [Concomitant]
  8. ALEVE [Concomitant]

REACTIONS (2)
  - Vitreous disorder [None]
  - Inflammation [None]
